FAERS Safety Report 4900746-2 (Version None)
Quarter: 2006Q1

REPORT INFORMATION
  Report Type: 
  Country: None (occurrence: None)
  Receive Date: 20060201
  Receipt Date: 20051228
  Transmission Date: 20060701
  Serious: Yes (Death, Other)
  Sender: FDA-Public Use
  Company Number: 2005-01432

PATIENT
  Age: 47 Year
  Sex: Female
  Weight: 69 kg

DRUGS (7)
  1. VELCADE [Suspect]
     Indication: MULTIPLE MYELOMA
     Dosage: SEE IMAGE
     Dates: start: 20050414, end: 20050516
  2. HUMALOG [Concomitant]
  3. ITRACONAZOLE [Concomitant]
  4. ACYCLOVIR [Concomitant]
  5. SULFAMETHOXAZOLE + TRIMETHOPRIM [Concomitant]
  6. DIOVAN [Concomitant]
  7. AMLODIPINE BESYLATE [Concomitant]

REACTIONS (12)
  - CEREBRAL ASPERGILLOSIS [None]
  - CEREBRAL HAEMORRHAGE [None]
  - CEREBRAL INFARCTION [None]
  - DIFFUSE ALVEOLAR DAMAGE [None]
  - EMBOLISM [None]
  - NEUTROPENIA [None]
  - PLEURAL EFFUSION [None]
  - PNEUMONIA [None]
  - PSEUDOMONAL BACTERAEMIA [None]
  - RESPIRATORY FAILURE [None]
  - SECONDARY IMMUNODEFICIENCY [None]
  - SEPSIS [None]
